FAERS Safety Report 20020595 (Version 2)
Quarter: 2022Q1

REPORT INFORMATION
  Report Type: Spontaneous
  Country: US (occurrence: US)
  Receive Date: 20211101
  Receipt Date: 20220117
  Transmission Date: 20220423
  Serious: Yes (Hospitalization, Other)
  Sender: FDA-Public Use
  Company Number: US-NOVOPROD-861481

PATIENT
  Age: 18 Year
  Sex: Female

DRUGS (1)
  1. NOVOLOG [Suspect]
     Active Substance: INSULIN ASPART
     Indication: Type 1 diabetes mellitus
     Dosage: UNK
     Route: 058
     Dates: start: 2016

REACTIONS (2)
  - Diabetic ketoacidosis [Unknown]
  - Product quality issue [Unknown]

NARRATIVE: CASE EVENT DATE: 20211001
